FAERS Safety Report 9328267 (Version 3)
Quarter: 2016Q1

REPORT INFORMATION
  Report Type: Spontaneous
  Country: FR (occurrence: FR)
  Receive Date: 20130604
  Receipt Date: 20160205
  Transmission Date: 20160526
  Serious: Yes (Hospitalization)
  Sender: FDA-Public Use
  Company Number: FR-BRISTOL-MYERS SQUIBB COMPANY-18904391

PATIENT
  Age: 36 Year
  Sex: Male

DRUGS (10)
  1. CLOPIXOL [Suspect]
     Active Substance: ZUCLOPENTHIXOL ACETATE
     Indication: SCHIZOPHRENIA
     Dosage: CLOPIXOL ACTION PROLONGE 200 MG/ML, SOLN FOR INJ   INTRPD ON 21APR13-26APR13 AND REINTD ON 26APR13
     Route: 030
     Dates: end: 20130417
  2. ABILIFY [Suspect]
     Active Substance: ARIPIPRAZOLE
     Indication: SCHIZOPHRENIA
     Dosage: 1DF:1TAB  INTRPD ON 21APR13-26APR13 AND THEN REINTRODUCED ON26APR13
     Route: 048
     Dates: end: 201304
  3. REVIA [Concomitant]
     Active Substance: NALTREXONE HYDROCHLORIDE
     Indication: PRODUCT USED FOR UNKNOWN INDICATION
     Dosage: REVIA50 MG,FILM-COATED SCORED TABS   1DF:1TAB  INTRPD ON 21APR13-26APR13 AND REINTRD ON 26APR13
     Route: 048
  4. LEPTICUR [Concomitant]
     Active Substance: TROPATEPINE HYDROCHLORIDE
     Indication: PRODUCT USED FOR UNKNOWN INDICATION
     Dosage: 1DF:1TAB  INTRPD ON 21APR13-26APR13 AND REINTRD ON 26APR13
     Route: 048
  5. LOXAPAC [Suspect]
     Active Substance: LOXAPINE SUCCINATE
     Indication: SCHIZOPHRENIA
     Dosage: LOXAPAC 25 MG, FILM-COATED TABLET   1DF:1TAB  INTRPD ON 21APR13-26APR13 AND REINTRODUCED ON 26APR13
     Route: 065
     Dates: end: 201304
  6. ALEPSAL [Concomitant]
     Active Substance: CAFFEINE\PHENOBARBITAL
     Indication: PRODUCT USED FOR UNKNOWN INDICATION
     Dosage: ALEPSAL 100 MG, TABLET   1DF;1TAB  INTRPD ON 21APR13-26APR13 AND REINTRD ON 26APR13
     Route: 048
  7. DEPAKINE CHRONO [Concomitant]
     Active Substance: VALPROATE SODIUM
     Indication: PRODUCT USED FOR UNKNOWN INDICATION
     Dosage: 2DF:2TABS  500 MG, FILM-COATED SCORED TAB ER  INTRPD ON 21APR13-26APR13 AND REINTRD ON 26APR13
     Route: 048
  8. SEROPLEX [Concomitant]
     Active Substance: ESCITALOPRAM OXALATE
     Indication: PRODUCT USED FOR UNKNOWN INDICATION
     Dosage: FILM-COATED SCORED TABLET  1DF:TAB  INTRPD ON 21APR13-26APR13 AND REINTRD ON 26APR13
     Route: 048
  9. THERALENE [Concomitant]
     Active Substance: TRIMEPRAZINE
     Indication: PRODUCT USED FOR UNKNOWN INDICATION
     Dosage: FILM-COATED SCORED TABLET   2DF:2TAB
     Route: 048
  10. TEMESTA [Concomitant]
     Active Substance: LORAZEPAM
     Indication: PRODUCT USED FOR UNKNOWN INDICATION
     Dosage: SCORED TABLET   1DF:1TAB
     Route: 048

REACTIONS (3)
  - Abnormal behaviour [Unknown]
  - Off label use [Unknown]
  - Dyskinesia [Recovered/Resolved]

NARRATIVE: CASE EVENT DATE: 20130421
